FAERS Safety Report 5482022-5 (Version None)
Quarter: 2007Q4

REPORT INFORMATION
  Report Type: 
  Country: None (occurrence: None)
  Receive Date: 20071005
  Receipt Date: 20070820
  Transmission Date: 20080405
  Serious: Yes (Hospitalization)
  Sender: FDA-Public Use
  Company Number: CIO07011557

PATIENT
  Age: 36 Year
  Sex: Male
  Weight: 92.1 kg

DRUGS (4)
  1. NYQUIL COLD/FLU, ALCOHOL 10% PSEUDOEPHEDRINE FREE, ORIGINAL FLAVOR(PAR [Suspect]
     Indication: INFLUENZA
     Dosage: 30 ML, 7 /DAY, ORAL
     Route: 048
     Dates: start: 20061029, end: 20061029
  2. ALTACE [Concomitant]
  3. LEVOTHYROXINE SODIUM [Concomitant]
  4. HYDROCHLOROTHIAZIDE [Concomitant]

REACTIONS (6)
  - CONFUSIONAL STATE [None]
  - DIZZINESS [None]
  - DYSPNOEA [None]
  - HEART RATE INCREASED [None]
  - HEPATIC FAILURE [None]
  - OVERDOSE [None]
